FAERS Safety Report 6297743-4 (Version None)
Quarter: 2009Q3

REPORT INFORMATION
  Report Type: 
  Country: None (occurrence: None)
  Receive Date: 20090805
  Receipt Date: 20090722
  Transmission Date: 20100115
  Serious: Yes (Hospitalization)
  Sender: FDA-Public Use
  Company Number: JP-ROCHE-646772

PATIENT
  Sex: Male

DRUGS (8)
  1. VALGANCICLOVIR HCL [Suspect]
     Route: 048
     Dates: start: 20070219, end: 20080818
  2. KALETRA [Suspect]
     Indication: HIV INFECTION
     Route: 048
     Dates: start: 20070319
  3. ZITHROMAX [Concomitant]
     Dosage: FREQUENCY:1 PER WEEK
     Route: 048
     Dates: start: 20070206, end: 20080818
  4. WYPAX [Concomitant]
     Dosage: FREQUENCY:1 PRN
     Route: 048
     Dates: start: 20070208, end: 20070910
  5. TRUVADA [Concomitant]
     Dosage: FREQUENCY: 1 PRN
     Route: 048
     Dates: start: 20070319
  6. BAKTAR [Concomitant]
     Route: 048
     Dates: start: 20070205, end: 20070220
  7. BAKTAR [Concomitant]
     Route: 048
     Dates: start: 20070220, end: 20080818
  8. LENDORMIN [Concomitant]
     Dosage: FREQUENCY:PRN
     Route: 048
     Dates: start: 20070910, end: 20090202

REACTIONS (6)
  - ANOGENITAL WARTS [None]
  - CONSTIPATION [None]
  - HYPOTHYROIDISM [None]
  - NAUSEA [None]
  - ORAL HERPES [None]
  - PSYCHOTIC DISORDER [None]
